FAERS Safety Report 4763526-7 (Version None)
Quarter: 2005Q3

REPORT INFORMATION
  Report Type: 
  Country: None (occurrence: None)
  Receive Date: 20050826
  Receipt Date: 20050117
  Transmission Date: 20060218
  Serious: Yes (Other)
  Sender: FDA-Public Use
  Company Number: USA-2003-0010750

PATIENT
  Sex: Male

DRUGS (2)
  1. OXYCONTIN [Suspect]
     Indication: PAIN
     Dosage: 160 MG, TID, ORAL
     Route: 048
  2. LORCET-HD [Concomitant]

REACTIONS (15)
  - ACTIVITIES OF DAILY LIVING IMPAIRED [None]
  - ANXIETY [None]
  - CONDITION AGGRAVATED [None]
  - DEPRESSION [None]
  - DRUG DEPENDENCE [None]
  - DRUG WITHDRAWAL SYNDROME [None]
  - DYSURIA [None]
  - ERECTILE DYSFUNCTION [None]
  - HYPOAESTHESIA [None]
  - INADEQUATE ANALGESIA [None]
  - NAUSEA [None]
  - PAIN [None]
  - PARAESTHESIA [None]
  - SLEEP DISORDER [None]
  - SOMNOLENCE [None]
